FAERS Safety Report 11119122 (Version 2)
Quarter: 2015Q3

REPORT INFORMATION
  Report Type: Report from Study
  Country: US (occurrence: US)
  Receive Date: 20150518
  Receipt Date: 20150731
  Transmission Date: 20151125
  Serious: Yes (Hospitalization, Other)
  Sender: FDA-Public Use
  Company Number: US-SA-2015SA010981

PATIENT
  Age: 56 Year
  Sex: Male

DRUGS (5)
  1. AMPYRA [Concomitant]
     Active Substance: DALFAMPRIDINE
     Indication: BALANCE DISORDER
  2. VITAMIN D [Concomitant]
     Active Substance: CHOLECALCIFEROL
  3. ASA [Concomitant]
     Active Substance: ASPIRIN
  4. AUBAGIO [Suspect]
     Active Substance: TERIFLUNOMIDE
     Indication: MULTIPLE SCLEROSIS
     Route: 048
     Dates: start: 20141224
  5. FISH OIL [Concomitant]
     Active Substance: FISH OIL

REACTIONS (9)
  - Peroneal nerve palsy [Unknown]
  - Drug dose omission [Unknown]
  - Alopecia [Unknown]
  - Malaise [Unknown]
  - Wheelchair user [Unknown]
  - Vertigo [Unknown]
  - Feeling hot [Unknown]
  - Asthenia [Unknown]
  - Muscular weakness [Unknown]
